FAERS Safety Report 20340088 (Version 2)
Quarter: 2022Q1

REPORT INFORMATION
  Report Type: Report from Study
  Country: CN (occurrence: CN)
  Receive Date: 20220117
  Receipt Date: 20220124
  Transmission Date: 20220423
  Serious: Yes (Other)
  Sender: FDA-Public Use
  Company Number: CN-NOVARTISPH-NVSC2021CN252095

PATIENT
  Age: 70 Year
  Sex: Female

DRUGS (17)
  1. ENTRESTO [Suspect]
     Active Substance: SACUBITRIL\VALSARTAN
     Indication: Cardiac failure chronic
     Dosage: 50 MG
     Route: 048
     Dates: start: 20191107, end: 20200109
  2. ENTRESTO [Suspect]
     Active Substance: SACUBITRIL\VALSARTAN
     Dosage: 25 MG
     Route: 048
     Dates: start: 20200110, end: 20200923
  3. ENTRESTO [Suspect]
     Active Substance: SACUBITRIL\VALSARTAN
     Dosage: 50 MG
     Route: 048
     Dates: start: 20200924, end: 20200930
  4. ENTRESTO [Suspect]
     Active Substance: SACUBITRIL\VALSARTAN
     Dosage: 100 MG
     Route: 048
     Dates: start: 20201001, end: 20210108
  5. DIGOXIN [Concomitant]
     Active Substance: DIGOXIN
     Indication: Cardiac failure
     Dosage: 0.25 MG
     Route: 048
     Dates: start: 20191107
  6. METOPROLOL TARTRATE [Concomitant]
     Active Substance: METOPROLOL TARTRATE
     Indication: Cardiac failure
     Dosage: 12.5 MG
     Route: 048
     Dates: start: 20191104
  7. ACARBOSE [Concomitant]
     Active Substance: ACARBOSE
     Indication: Pre-existing disease
     Dosage: 50 MG
     Route: 048
     Dates: start: 20191104
  8. MILRINONE [Concomitant]
     Active Substance: MILRINONE
     Indication: Cardiac failure
     Dosage: 10 MG
     Route: 042
     Dates: start: 20191105, end: 20191114
  9. TORSEMIDE [Concomitant]
     Active Substance: TORSEMIDE
     Indication: Cardiac failure
     Dosage: 20 MG
     Route: 042
     Dates: start: 20191105, end: 20191114
  10. HEPARIN CALCIUM [Concomitant]
     Active Substance: HEPARIN CALCIUM
     Indication: Pre-existing disease
     Dosage: 4100 IU
     Route: 058
     Dates: start: 20191105, end: 20191111
  11. SPIRONOLACTONE [Concomitant]
     Active Substance: SPIRONOLACTONE
     Indication: Cardiac failure
     Dosage: 20 MG
     Route: 048
     Dates: start: 20191105
  12. ATORVASTATIN CALCIUM [Concomitant]
     Active Substance: ATORVASTATIN CALCIUM
     Indication: Pre-existing disease
     Dosage: 20 MG
     Route: 048
     Dates: start: 20191114
  13. DIISOPROPYLAMINE DICHLORACETATE [Concomitant]
     Indication: Pre-existing disease
     Dosage: 1 DOSAGE FORM (1 TABLET)
     Route: 048
     Dates: start: 20191104, end: 20191112
  14. CREATINE [Concomitant]
     Active Substance: CREATINE
     Indication: Pre-existing disease
     Dosage: 1 G
     Route: 042
     Dates: start: 20191104, end: 20191115
  15. ALUMINUM [Concomitant]
     Active Substance: ALUMINUM
     Indication: Pre-existing disease
     Dosage: 1 DOSAGE FORM
     Route: 048
     Dates: start: 20191114
  16. MAGNESIUM [Concomitant]
     Active Substance: MAGNESIUM
     Indication: Pre-existing disease
     Dosage: 1 DOSAGE FORM
     Route: 048
     Dates: start: 20191114
  17. ASPIRIN [Concomitant]
     Active Substance: ASPIRIN
     Indication: Pre-existing disease
     Dosage: 1 DOSAGE FORM
     Route: 048
     Dates: start: 20191114

REACTIONS (4)
  - Hypokalaemia [Recovered/Resolved]
  - Wrong technique in product usage process [Recovered/Resolved]
  - Wrong technique in product usage process [Recovered/Resolved]
  - Wrong technique in product usage process [Recovered/Resolved]

NARRATIVE: CASE EVENT DATE: 20191107
